FAERS Safety Report 17831754 (Version 1)
Quarter: 2020Q2

REPORT INFORMATION
  Report Type: Spontaneous
  Country: US (occurrence: US)
  Receive Date: 20200528
  Receipt Date: 20200528
  Transmission Date: 20200714
  Serious: No
  Sender: FDA-Public Use
  Company Number: US-ROCHE-2563195

PATIENT
  Sex: Female
  Weight: 59.02 kg

DRUGS (1)
  1. OCREVUS [Suspect]
     Active Substance: OCRELIZUMAB
     Indication: RELAPSING-REMITTING MULTIPLE SCLEROSIS
     Dosage: DATE OF TREATMENT: 06/JUL/2018, 02/JAN/2019, 02/JUL/2019
     Route: 042
     Dates: start: 20180621

REACTIONS (4)
  - Balance disorder [Not Recovered/Not Resolved]
  - Fall [Not Recovered/Not Resolved]
  - Dysgraphia [Not Recovered/Not Resolved]
  - Drug ineffective [Unknown]
